FAERS Safety Report 8731834 (Version 3)
Quarter: 2013Q1

REPORT INFORMATION
  Report Type: Report from Study
  Country: US (occurrence: US)
  Receive Date: 20120820
  Receipt Date: 20130219
  Transmission Date: 20140127
  Serious: Yes (Hospitalization, Other)
  Sender: FDA-Public Use
  Company Number: US-US-EMD SERONO, INC.-7154552

PATIENT
  Sex: Female

DRUGS (7)
  1. REBIF [Suspect]
     Indication: RELAPSING-REMITTING MULTIPLE SCLEROSIS
     Route: 058
     Dates: start: 20041201, end: 201209
  2. HORMONE REPLACEMENT THERAPY [Concomitant]
     Indication: PRODUCT USED FOR UNKNOWN INDICATION
     Dates: end: 2006
  3. PRIMIDONE [Concomitant]
     Indication: TREMOR
  4. GABAPENTIN [Concomitant]
     Indication: PAIN
  5. BACLOFEN [Concomitant]
     Indication: MUSCLE SPASTICITY
  6. LEXAPRO [Concomitant]
     Indication: DEPRESSION
  7. TRAZODONE [Concomitant]
     Indication: DEPRESSION

REACTIONS (9)
  - HER-2 positive breast cancer [Recovering/Resolving]
  - Uterine cyst [Unknown]
  - Multiple sclerosis relapse [Recovering/Resolving]
  - Laboratory test abnormal [Unknown]
  - Blood pressure abnormal [Unknown]
  - Weight decreased [Unknown]
  - Nausea [Unknown]
  - Asthenia [Unknown]
  - Malaise [Unknown]
